FAERS Safety Report 24827701 (Version 1)
Quarter: 2025Q1

REPORT INFORMATION
  Report Type: Spontaneous
  Country: CN (occurrence: CN)
  Receive Date: 20250109
  Receipt Date: 20250109
  Transmission Date: 20250408
  Serious: Yes (Other)
  Sender: JAZZ
  Company Number: CN-PHARMAMAR-2024PM000948

PATIENT
  Age: 63 Year
  Sex: Female

DRUGS (17)
  1. ZEPZELCA [Suspect]
     Active Substance: LURBINECTEDIN
     Indication: Small cell lung cancer
     Dosage: 4 MILLIGRAM, Q3W
     Route: 042
     Dates: start: 20240925, end: 20240925
  2. ZEPZELCA [Suspect]
     Active Substance: LURBINECTEDIN
     Dosage: 4 MILLIGRAM, Q3W
     Route: 042
     Dates: start: 20241016, end: 20241016
  3. DEXTROSE [Concomitant]
     Active Substance: DEXTROSE MONOHYDRATE
     Indication: Vehicle solution use
     Dosage: 250 MILLILITER, Q3W
     Route: 042
     Dates: start: 20240925, end: 20240925
  4. DEXTROSE [Concomitant]
     Active Substance: DEXTROSE MONOHYDRATE
     Dosage: 250 MILLILITER, Q3W
     Route: 042
     Dates: start: 20241016
  5. DEXTROSE [Concomitant]
     Active Substance: DEXTROSE MONOHYDRATE
     Dosage: 250 MILLILITER, Q3W
     Route: 042
     Dates: start: 20240925, end: 20240925
  6. DEXTROSE [Concomitant]
     Active Substance: DEXTROSE MONOHYDRATE
     Dosage: 250 MILLILITER, Q3W
     Route: 042
     Dates: start: 20241016
  7. PHOSPHOLIPID [Concomitant]
     Active Substance: PHOSPHOLIPID
     Indication: Hepatobiliary disorder prophylaxis
     Dosage: 2 DOSAGE FORM, BID
     Route: 048
     Dates: start: 20240925, end: 20240928
  8. PHOSPHOLIPID [Concomitant]
     Active Substance: PHOSPHOLIPID
     Dosage: 20 MILLIGRAM, BID
     Route: 048
     Dates: start: 20241015, end: 20241018
  9. PHOSPHOLIPID [Concomitant]
     Active Substance: PHOSPHOLIPID
     Dosage: 20 MILLIGRAM, BID
     Route: 048
     Dates: start: 20241015, end: 20241018
  10. OMEPRAZOLE SODIUM [Concomitant]
     Active Substance: OMEPRAZOLE SODIUM
     Indication: Gastrointestinal disorder prophylaxis
     Dosage: 40 MILLIGRAM, QD
     Route: 042
     Dates: start: 20240925, end: 20240927
  11. OMEPRAZOLE SODIUM [Concomitant]
     Active Substance: OMEPRAZOLE SODIUM
     Dosage: 40 MILLIGRAM, QD
     Route: 042
     Dates: start: 20241015, end: 20241018
  12. OMEPRAZOLE SODIUM [Concomitant]
     Active Substance: OMEPRAZOLE SODIUM
     Dosage: 40 MILLIGRAM, QD
     Route: 042
     Dates: start: 20240925, end: 20240927
  13. OMEPRAZOLE SODIUM [Concomitant]
     Active Substance: OMEPRAZOLE SODIUM
     Dosage: 40 MILLIGRAM, QD
     Route: 042
     Dates: start: 20241015, end: 20241018
  14. DOLASETRON MESYLATE [Concomitant]
     Active Substance: DOLASETRON MESYLATE
     Indication: Antiallergic therapy
     Dosage: 100 MILLIGRAM, QD
     Route: 042
     Dates: start: 20240925, end: 20240927
  15. DOLASETRON MESYLATE [Concomitant]
     Active Substance: DOLASETRON MESYLATE
     Indication: Prophylaxis of nausea and vomiting
     Dosage: 100 MILLIGRAM, QD
     Route: 042
     Dates: start: 20241016, end: 20241018
  16. DOLASETRON MESYLATE [Concomitant]
     Active Substance: DOLASETRON MESYLATE
     Dosage: 100 MILLIGRAM, QD
     Route: 042
     Dates: start: 20240925, end: 20240927
  17. DOLASETRON MESYLATE [Concomitant]
     Active Substance: DOLASETRON MESYLATE
     Dosage: 100 MILLIGRAM, QD
     Route: 042
     Dates: start: 20241016, end: 20241018

REACTIONS (2)
  - Drug-induced liver injury [Recovered/Resolved]
  - Drug-induced liver injury [Recovered/Resolved]

NARRATIVE: CASE EVENT DATE: 20240927
